FAERS Safety Report 15019597 (Version 1)
Quarter: 2018Q2

REPORT INFORMATION
  Report Type: Spontaneous
  Country: US (occurrence: US)
  Receive Date: 20180618
  Receipt Date: 20180618
  Transmission Date: 20180711
  Serious: Yes (Death, Other)
  Sender: FDA-Public Use
  Company Number: US-BRISTOL-MYERS SQUIBB COMPANY-BMS-2018-055920

PATIENT
  Sex: Female

DRUGS (2)
  1. YERVOY [Suspect]
     Active Substance: IPILIMUMAB
     Indication: METASTATIC NEOPLASM
     Dosage: 58.5 MG, ONCE
     Route: 042
     Dates: start: 20180501, end: 20180501
  2. OPDIVO [Suspect]
     Active Substance: NIVOLUMAB
     Indication: NEOPLASM MALIGNANT
     Dosage: 176 MG, ONCE
     Route: 042
     Dates: start: 20180501, end: 20180501

REACTIONS (3)
  - Death [Fatal]
  - Product use in unapproved indication [Unknown]
  - Hospice care [Unknown]
